FAERS Safety Report 4577185-X (Version None)
Quarter: 2005Q1

REPORT INFORMATION
  Report Type: 
  Country: None (occurrence: None)
  Receive Date: 20050210
  Receipt Date: 20050120
  Transmission Date: 20050727
  Serious: Yes (Life-Threatening, Hospitalization)
  Sender: FDA-Public Use
  Company Number: PHBS2005IT01167

PATIENT
  Age: 42 Year
  Sex: Female

DRUGS (4)
  1. TEGRETOL [Concomitant]
  2. ATORVASTATIN [Concomitant]
     Dates: start: 20040801
  3. LESCOL [Suspect]
     Dosage: 80 MG, UNK
     Dates: start: 20040101, end: 20040701
  4. LESCOL [Suspect]
     Dosage: 80 MG, UNK
     Dates: start: 20040901, end: 20041101

REACTIONS (3)
  - BLOOD CREATINE PHOSPHOKINASE INCREASED [None]
  - PARALYSIS [None]
  - POLYMYOSITIS [None]
